FAERS Safety Report 21742086 (Version 3)
Quarter: 2023Q1

REPORT INFORMATION
  Report Type: Spontaneous
  Country: US (occurrence: US)
  Receive Date: 20221216
  Receipt Date: 20230110
  Transmission Date: 20230418
  Serious: No
  Sender: FDA-Public Use
  Company Number: US-PFIZER INC-PV202200124949

PATIENT
  Age: 60 Year
  Sex: Female

DRUGS (3)
  1. METHOTREXATE SODIUM [Suspect]
     Active Substance: METHOTREXATE SODIUM
     Indication: Rheumatoid arthritis
     Dosage: 6 TABS OF MTX, WEEKLY
  2. METHOTREXATE SODIUM [Suspect]
     Active Substance: METHOTREXATE SODIUM
     Indication: Gout
  3. METHOTREXATE SODIUM [Suspect]
     Active Substance: METHOTREXATE SODIUM
     Indication: Osteoarthritis

REACTIONS (7)
  - Drug hypersensitivity [Unknown]
  - Drug ineffective [Unknown]
  - Arthralgia [Unknown]
  - Back pain [Unknown]
  - Pain in extremity [Unknown]
  - Peripheral swelling [Unknown]
  - Gout [Unknown]

NARRATIVE: CASE EVENT DATE: 20220101
